FAERS Safety Report 5288690-5 (Version None)
Quarter: 2007Q2

REPORT INFORMATION
  Report Type: 
  Country: None (occurrence: None)
  Receive Date: 20070405
  Receipt Date: 20070328
  Transmission Date: 20071010
  Serious: Yes (Other)
  Sender: FDA-Public Use
  Company Number: US-ROCHE-490155

PATIENT
  Age: 60 Year
  Sex: Male

DRUGS (5)
  1. PEGASYS [Suspect]
     Dosage: THERAPY STOPPED FOR ONE WEEK ON AN UNSPECIFIED DATE.
     Route: 065
     Dates: start: 20070112
  2. PEGASYS [Suspect]
     Route: 065
  3. RIBAVIRIN [Suspect]
     Dosage: THERAPY STOPPED FOR ONE WEEK ON AN UNSPECIFIED DATE.
     Route: 065
     Dates: start: 20070112
  4. RIBAVIRIN [Suspect]
     Route: 065
  5. PROCRIT [Concomitant]
     Indication: DRUG USE FOR UNKNOWN INDICATION

REACTIONS (6)
  - ARTHRALGIA [None]
  - BLOOD GLUCOSE [None]
  - FATIGUE [None]
  - HAEMOGLOBIN DECREASED [None]
  - SERUM FERRITIN INCREASED [None]
  - WHITE BLOOD CELL COUNT DECREASED [None]
